FAERS Safety Report 7596964-8 (Version None)
Quarter: 2011Q3

REPORT INFORMATION
  Report Type: 
  Country: None (occurrence: None)
  Receive Date: 20110708
  Receipt Date: 20110630
  Transmission Date: 20111222
  Serious: Yes (Hospitalization)
  Sender: FDA-Public Use
  Company Number: FR-TEVA-289114ISR

PATIENT
  Sex: Female
  Weight: 65 kg

DRUGS (13)
  1. SINEMET [Suspect]
     Indication: PARKINSON'S DISEASE
     Dosage: 8 DOSAGE FORMS;
  2. FENOFIBRATE [Concomitant]
     Indication: HYPERCHOLESTEROLAEMIA
     Dosage: 160 MILLIGRAM;
     Route: 048
     Dates: start: 20110314
  3. NORMACOL (DIHYDROGENOPHOSPHATE AND HYDORGENOPHOSPHATE SODIC) [Concomitant]
     Indication: HYPERCHOLESTEROLAEMIA
     Route: 048
  4. AZILECT [Suspect]
     Indication: PARKINSON'S DISEASE
     Dosage: 1 DOSAGE FORMS;
     Route: 048
     Dates: start: 20110217
  5. BONIVA [Suspect]
     Dates: end: 20110314
  6. ACETAMINOPHEN [Concomitant]
     Indication: HYPERCHOLESTEROLAEMIA
     Route: 048
     Dates: start: 20110314
  7. LORAZEPAM [Concomitant]
     Indication: HYPERCHOLESTEROLAEMIA
     Route: 048
  8. SERMION (NICERGOLINE) [Concomitant]
     Indication: HYPERCHOLESTEROLAEMIA
     Route: 048
     Dates: start: 20110314
  9. METEOSPASMYL  (ALVERINE-SIMETICONE) [Concomitant]
     Indication: HYPERCHOLESTEROLAEMIA
     Route: 048
     Dates: start: 20110314
  10. LODOZ (BISOPROLOL) [Concomitant]
     Indication: ATRIAL FIBRILLATION
     Dosage: 10 MG/6.25MG
     Route: 048
     Dates: start: 20110314
  11. FIXICAL (CALCIUM CARBONATE) [Concomitant]
     Indication: HYPERCHOLESTEROLAEMIA
     Route: 048
     Dates: start: 20110314
  12. MOTILIUM	(DOMPERIDONE) [Concomitant]
     Dosage: 6 DOSAGE FORMS;
     Route: 048
  13. RABEPRAZOLE SODIUM [Concomitant]
     Dosage: 20 MILLIGRAM;
     Route: 048

REACTIONS (2)
  - ATRIAL FIBRILLATION [None]
  - RENAL FAILURE [None]
